FAERS Safety Report 4760730-9 (Version None)
Quarter: 2005Q3

REPORT INFORMATION
  Report Type: 
  Country: None (occurrence: None)
  Receive Date: 20050902
  Receipt Date: 20050823
  Transmission Date: 20060218
  Serious: Yes (Hospitalization)
  Sender: FDA-Public Use
  Company Number: 200517436GDDC

PATIENT
  Age: 69 Year
  Sex: Female

DRUGS (5)
  1. KETEK [Suspect]
     Indication: EAR INFECTION
     Dosage: DOSE: UNK
     Route: 048
     Dates: start: 20050126, end: 20050130
  2. KETEK [Suspect]
     Indication: PHARYNGITIS
     Dosage: DOSE: UNK
     Route: 048
     Dates: start: 20050126, end: 20050130
  3. KETEK [Suspect]
     Indication: RHINITIS
     Dosage: DOSE: UNK
     Route: 048
     Dates: start: 20050126, end: 20050130
  4. TAHOR [Suspect]
     Dosage: DOSE: UNK
     Dates: end: 20050126
  5. RISEDRONATE [Concomitant]
     Indication: OSTEOPOROSIS
     Dosage: DOSE: UNK
     Dates: start: 20030701

REACTIONS (5)
  - BLOOD CREATINE PHOSPHOKINASE INCREASED [None]
  - INFLUENZA [None]
  - MYALGIA [None]
  - MYOPATHY [None]
  - POLYMYOSITIS [None]
